FAERS Safety Report 8173178-4 (Version None)
Quarter: 2012Q1

REPORT INFORMATION
  Report Type: 
  Country: None (occurrence: None)
  Receive Date: 20120229
  Receipt Date: 20110529
  Transmission Date: 20120608
  Serious: No
  Sender: FDA-Public Use
  Company Number: US-GLAXOSMITHKLINE-A0930420A

PATIENT

DRUGS (1)
  1. IMITREX [Suspect]
     Indication: BASILAR MIGRAINE
     Route: 065
     Dates: start: 20080101

REACTIONS (1)
  - MIGRAINE [None]
